FAERS Safety Report 4835510-6 (Version None)
Quarter: 2005Q4

REPORT INFORMATION
  Report Type: 
  Country: None (occurrence: None)
  Receive Date: 20051121
  Receipt Date: 20051107
  Transmission Date: 20060501
  Serious: Yes (Death)
  Sender: FDA-Public Use
  Company Number: 2005107362

PATIENT
  Age: 49 Year
  Sex: Male

DRUGS (10)
  1. NEURONTIN [Suspect]
     Indication: BIPOLAR DISORDER
     Dosage: 400 MG
  2. XANAX [Concomitant]
  3. OXYCONTIN [Concomitant]
  4. VICODIN ES [Concomitant]
  5. ALL OTHER THERAPEUTIC PRODUCTS (ALL OTHER THERAPEUTIC PRODUCTS) [Concomitant]
  6. VALIUM [Concomitant]
  7. LORACET (HYDROCODONE BITARTRATE, PARACETAMOL) [Concomitant]
  8. AMARYL [Concomitant]
  9. ALBUTAMOL (SALBUTAMOL) [Concomitant]
  10. CLARITIN-D [Concomitant]

REACTIONS (11)
  - CERVICOGENIC HEADACHE [None]
  - COMPLETED SUICIDE [None]
  - DRUG INEFFECTIVE [None]
  - GUN SHOT WOUND [None]
  - INTERVERTEBRAL DISC PROTRUSION [None]
  - LIGAMENT SPRAIN [None]
  - LOSS OF CONTROL OF LEGS [None]
  - PAIN IN EXTREMITY [None]
  - RESTLESS LEGS SYNDROME [None]
  - SCIATICA [None]
  - TREATMENT NONCOMPLIANCE [None]
